FAERS Safety Report 12650354 (Version 1)
Quarter: 2016Q3

REPORT INFORMATION
  Report Type: Spontaneous
  Country: RU (occurrence: RU)
  Receive Date: 20160814
  Receipt Date: 20160814
  Transmission Date: 20161109
  Serious: Yes (Other)
  Sender: FDA-Public Use
  Company Number: RU-009507513-1608RUS004882

PATIENT
  Age: 65 Year
  Sex: Female

DRUGS (1)
  1. ESTRIOL [Suspect]
     Active Substance: ESTRIOL
     Indication: UROGENITAL ATROPHY
     Dosage: UNKNOWN
     Route: 067
     Dates: start: 20140226, end: 20150821

REACTIONS (1)
  - Ovarian cyst [Not Recovered/Not Resolved]

NARRATIVE: CASE EVENT DATE: 20150917
